FAERS Safety Report 15172082 (Version 1)
Quarter: 2018Q3

REPORT INFORMATION
  Report Type: Spontaneous
  Country: US (occurrence: US)
  Receive Date: 20180622
  Receipt Date: 20180622
  Transmission Date: 20181010
  Serious: Yes (Life-Threatening, Hospitalization)
  Sender: FDA-Public Use
  Company Number: None

PATIENT
  Age: 73 Month
  Sex: Male

DRUGS (1)
  1. APOTEX FLUTICASONE [Suspect]
     Active Substance: FLUTICASONE

REACTIONS (2)
  - Superior sagittal sinus thrombosis [None]
  - Product quality issue [None]

NARRATIVE: CASE EVENT DATE: 20180330
